FAERS Safety Report 5073355-5 (Version None)
Quarter: 2006Q3

REPORT INFORMATION
  Report Type: 
  Country: None (occurrence: None)
  Receive Date: 20060808
  Receipt Date: 20060726
  Transmission Date: 20061208
  Serious: Yes (Hospitalization)
  Sender: FDA-Public Use
  Company Number: HQWYE508231JUL06

PATIENT
  Sex: Female
  Weight: 48 kg

DRUGS (10)
  1. ENBREL [Suspect]
     Indication: RHEUMATOID ARTHRITIS
     Route: 058
     Dates: start: 20051011, end: 20060326
  2. ISONIAZID [Suspect]
     Indication: DRUG USE FOR UNKNOWN INDICATION
     Route: 048
     Dates: start: 20050829
  3. RANITIDINE HYDROCHLORIDE [Concomitant]
     Dosage: UNKNOWN
     Route: 048
  4. CLINORIL [Concomitant]
     Dosage: UNKNOWN
     Route: 048
  5. SHINLUCK [Concomitant]
     Dosage: UNKNOWN
     Route: 048
  6. RESLIN [Concomitant]
     Dosage: UNKNOWN
     Route: 048
  7. RHYTHMY [Concomitant]
     Dosage: UNKNOWN
     Route: 048
  8. ALFAROL [Concomitant]
     Dosage: UNKNOWN
     Route: 048
  9. EPEL [Concomitant]
     Dosage: UNKNOWN
     Route: 048
  10. MUCOSTA [Concomitant]
     Dosage: UNKNOWN
     Route: 048

REACTIONS (3)
  - CYSTITIS HAEMORRHAGIC [None]
  - HAEMATURIA [None]
  - RASH [None]
